FAERS Safety Report 4879206-3 (Version None)
Quarter: 2005Q4

REPORT INFORMATION
  Report Type: 
  Country: None (occurrence: None)
  Receive Date: 20051209
  Receipt Date: 20050930
  Transmission Date: 20060501
  Serious: Yes (Death)
  Sender: FDA-Public Use
  Company Number: USA-2005-0021357

PATIENT
  Age: 57 Year
  Sex: Male
  Weight: 113.3993 kg

DRUGS (4)
  1. OXYCONTIN [Suspect]
     Indication: PAIN
     Dosage: 40 MG, Q8H, UNKNOWN
     Route: 065
  2. HYDROCODONE BITARTRATE [Suspect]
     Route: 065
  3. PERCOCET [Suspect]
     Indication: PAIN
     Dosage: UNK MG, SEE TEXT, UNKNOWN
     Route: 065
  4. XANAX [Concomitant]

REACTIONS (1)
  - ACCIDENTAL OVERDOSE [None]
